FAERS Safety Report 4422329-3 (Version None)
Quarter: 2004Q3

REPORT INFORMATION
  Report Type: 
  Country: None (occurrence: None)
  Receive Date: 20040810
  Receipt Date: 20040729
  Transmission Date: 20050211
  Serious: Yes (Hospitalization)
  Sender: FDA-Public Use
  Company Number: 375426

PATIENT
  Age: 95 Year
  Sex: Female

DRUGS (9)
  1. DILATREND [Suspect]
     Indication: VENTRICULAR TACHYCARDIA
     Dosage: 12.5MG TWICE PER DAY
     Route: 048
  2. CORDARONE [Suspect]
     Indication: VENTRICULAR TACHYCARDIA
     Dosage: 300MG TWICE PER DAY
     Route: 048
     Dates: start: 20031215, end: 20040607
  3. NITRODERM [Concomitant]
  4. CORVATON [Concomitant]
  5. RENITEN [Concomitant]
  6. TARDYFERON [Concomitant]
  7. SUCRALFATE [Concomitant]
  8. NOVONORM [Concomitant]
  9. LASIX [Concomitant]

REACTIONS (7)
  - ELECTROCARDIOGRAM QT PROLONGED [None]
  - FALL [None]
  - GAIT DISTURBANCE [None]
  - MALAISE [None]
  - SINUS BRADYCARDIA [None]
  - SYNCOPE [None]
  - TROPONIN INCREASED [None]
